FAERS Safety Report 7829424-7 (Version None)
Quarter: 2011Q4

REPORT INFORMATION
  Report Type: 
  Country: None (occurrence: None)
  Receive Date: 20111020
  Receipt Date: 20111007
  Transmission Date: 20120403
  Serious: Yes (Congenital Anomaly)
  Sender: FDA-Public Use
  Company Number: DE-ARROW GEN-2011-16115

PATIENT

DRUGS (6)
  1. PREDNISOLONE [Concomitant]
     Indication: SYSTEMIC LUPUS ERYTHEMATOSUS
     Dosage: 7.5 MG, DAILY
     Route: 064
     Dates: start: 20091031, end: 20110131
  2. RAMIPRIL [Suspect]
     Indication: GLOMERULONEPHRITIS MEMBRANOUS
     Dosage: 5 MG, DAILY
     Route: 064
     Dates: start: 20101031, end: 20110126
  3. CYCLOSPORINE [Suspect]
     Indication: GLOMERULONEPHRITIS MEMBRANOUS
     Dosage: 150 MG, BID
     Route: 064
     Dates: start: 20091031, end: 20110131
  4. FALITHROM [Suspect]
     Indication: PULMONARY EMBOLISM
     Dosage: 3 MG, BID
     Route: 064
     Dates: start: 20091031, end: 20110113
  5. TORSEMIDE [Suspect]
     Indication: GLOMERULONEPHRITIS MEMBRANOUS
     Dosage: 10 MG, DAILY
     Route: 064
     Dates: start: 20101031, end: 20110126
  6. ENOXAPARIN [Concomitant]
     Indication: DEEP VEIN THROMBOSIS
     Dosage: 140 MG, DAILY (60 + 80)
     Route: 064
     Dates: start: 20110114, end: 20110131

REACTIONS (1)
  - FALLOT'S TETRALOGY [None]
